FAERS Safety Report 21888662 (Version 2)
Quarter: 2023Q1

REPORT INFORMATION
  Report Type: Spontaneous
  Country: BR (occurrence: BR)
  Receive Date: 20230120
  Receipt Date: 20230214
  Transmission Date: 20230417
  Serious: Yes (Other)
  Sender: FDA-Public Use
  Company Number: BR-002147023-NVSC2023BR012895

PATIENT
  Sex: Female
  Weight: 73 kg

DRUGS (4)
  1. ELTROMBOPAG OLAMINE [Suspect]
     Active Substance: ELTROMBOPAG OLAMINE
     Indication: Bone marrow failure
     Dosage: 50 MG (3 PILLS PER DAY)
     Route: 065
  2. ELTROMBOPAG OLAMINE [Suspect]
     Active Substance: ELTROMBOPAG OLAMINE
     Dosage: 150 MG, QD
     Route: 048
     Dates: start: 2017
  3. ELTROMBOPAG OLAMINE [Concomitant]
     Active Substance: ELTROMBOPAG OLAMINE
     Indication: Product used for unknown indication
     Dosage: UNK
     Route: 065
  4. CYCLOSPORINE [Concomitant]
     Active Substance: CYCLOSPORINE
     Indication: Bone marrow failure
     Dosage: 100 MG, QD
     Route: 048
     Dates: start: 2005

REACTIONS (7)
  - Platelet count decreased [Unknown]
  - Oral disorder [Recovering/Resolving]
  - Aphthous ulcer [Recovering/Resolving]
  - Muscle spasms [Recovering/Resolving]
  - Tongue eruption [Recovering/Resolving]
  - Pain in extremity [Recovering/Resolving]
  - Product availability issue [Unknown]
